FAERS Safety Report 9456231 (Version 1)
Quarter: 2013Q3

REPORT INFORMATION
  Report Type: Spontaneous
  Country: JP (occurrence: None)
  Receive Date: 20130808
  Receipt Date: 20130808
  Transmission Date: 20140515
  Serious: Yes (Hospitalization)
  Sender: FDA-Public Use
  Company Number: THQ2013A05773

PATIENT
  Age: 75 Year
  Sex: Male

DRUGS (8)
  1. TAKEPRON (LANSOPRAZOLE) [Suspect]
  2. GABAPEN [Suspect]
     Route: 048
  3. LENDORMIN [Suspect]
  4. PLAVIX [Suspect]
  5. TEGRETOL (CARBAMAZEPINE) UNKNOWN [Suspect]
  6. MAGNESIUM OXIDE [Suspect]
  7. EXFORGE [Suspect]
  8. ASPIRIN [Suspect]

REACTIONS (1)
  - Ileus paralytic [None]
